FAERS Safety Report 7435367-3 (Version None)
Quarter: 2011Q2

REPORT INFORMATION
  Report Type: 
  Country: None (occurrence: None)
  Receive Date: 20110425
  Receipt Date: 20110414
  Transmission Date: 20111010
  Serious: Yes (Life-Threatening)
  Sender: FDA-Public Use
  Company Number: B0714048A

PATIENT
  Sex: Male
  Weight: 63 kg

DRUGS (7)
  1. ALKERAN [Suspect]
     Indication: STEM CELL TRANSPLANT
     Dosage: 100MGM2 PER DAY
     Route: 042
     Dates: start: 20081110, end: 20081111
  2. BAKTAR [Concomitant]
     Dosage: 4IUAX PER DAY
     Route: 048
     Dates: start: 20081110, end: 20081111
  3. KYTRIL [Concomitant]
     Dosage: 6MG PER DAY
     Route: 042
     Dates: start: 20081110, end: 20081111
  4. CRAVIT [Concomitant]
     Dosage: 300MG PER DAY
     Route: 048
     Dates: start: 20081110, end: 20081121
  5. FUNGUARD [Concomitant]
     Dosage: 50MG PER DAY
     Route: 042
     Dates: start: 20081110, end: 20081125
  6. VICCLOX [Concomitant]
     Dosage: 1000MG PER DAY
     Route: 048
     Dates: start: 20081110, end: 20081130
  7. MUCOSTA [Concomitant]
     Dosage: 300MG PER DAY
     Route: 048
     Dates: start: 20081110, end: 20081130

REACTIONS (1)
  - SEPSIS [None]
